FAERS Safety Report 20681735 (Version 2)
Quarter: 2022Q4

REPORT INFORMATION
  Report Type: Spontaneous
  Country: US (occurrence: US)
  Receive Date: 20220406
  Receipt Date: 20221012
  Transmission Date: 20230112
  Serious: No
  Sender: FDA-Public Use
  Company Number: US-ELI_LILLY_AND_COMPANY-US202203004606

PATIENT
  Sex: Female

DRUGS (1)
  1. RETEVMO [Suspect]
     Active Substance: SELPERCATINIB
     Indication: Non-small cell lung cancer stage IV
     Dosage: 120 MG ONCE A DAY AND 160 MG ONCE A DAY
     Route: 065
     Dates: start: 20211101

REACTIONS (4)
  - Dysphonia [Not Recovered/Not Resolved]
  - Swelling face [Unknown]
  - Gastric dilatation [Unknown]
  - Peripheral swelling [Unknown]
